FAERS Safety Report 7346137-9 (Version None)
Quarter: 2011Q1

REPORT INFORMATION
  Report Type: 
  Country: None (occurrence: None)
  Receive Date: 20110311
  Receipt Date: 20110210
  Transmission Date: 20110831
  Serious: Yes (Hospitalization, Other)
  Sender: FDA-Public Use
  Company Number: US-BAYER-200932240NA

PATIENT
  Sex: Female
  Weight: 90 kg

DRUGS (3)
  1. PENICILLIN [Concomitant]
     Dates: start: 20030601
  2. AMOXICILLIN [Concomitant]
     Dates: start: 20070131
  3. YASMIN [Suspect]
     Indication: PRODUCT USED FOR UNKNOWN INDICATION
     Dates: start: 20070501, end: 20070915

REACTIONS (5)
  - PULMONARY EMBOLISM [None]
  - VISION BLURRED [None]
  - SYNCOPE [None]
  - FACE INJURY [None]
  - DIZZINESS [None]
